FAERS Safety Report 4451410-8 (Version None)
Quarter: 2004Q3

REPORT INFORMATION
  Report Type: 
  Country: None (occurrence: None)
  Receive Date: 20040915
  Receipt Date: 20040901
  Transmission Date: 20050211
  Serious: No
  Sender: FDA-Public Use
  Company Number: 04P-163-0265760-00

PATIENT
  Age: 56 Year
  Sex: Female

DRUGS (6)
  1. HUMIRA [Suspect]
     Indication: RHEUMATOID ARTHRITIS
     Dosage: 40 MG, 1 IN 2 WK, SUBCUTANEOUS
     Route: 058
     Dates: start: 20030901, end: 20030601
  2. METHOTREXATE [Concomitant]
  3. HYDROCHLOROQUINONE [Concomitant]
  4. SULFAZALAZINE [Concomitant]
  5. CELECOXIB [Concomitant]
  6. ATENOLOL [Concomitant]

REACTIONS (2)
  - BREAST CANCER [None]
  - NAUSEA [None]
